FAERS Safety Report 15066349 (Version 1)
Quarter: 2018Q2

REPORT INFORMATION
  Report Type: Spontaneous
  Country: US (occurrence: US)
  Receive Date: 20180626
  Receipt Date: 20180626
  Transmission Date: 20180711
  Serious: Yes (Other)
  Sender: FDA-Public Use
  Company Number: US-ASTRAZENECA-2018SE80969

PATIENT
  Age: 689 Month
  Sex: Female
  Weight: 81.6 kg

DRUGS (6)
  1. CARIZEM [Concomitant]
     Indication: ATRIAL FIBRILLATION
     Dosage: TWO TIMES A DAY
     Route: 048
     Dates: start: 201711
  2. IMFINZI [Suspect]
     Active Substance: DURVALUMAB
     Indication: NON-SMALL CELL LUNG CANCER STAGE IIIA
     Dosage: EVERY TWO WEEKS
     Route: 042
     Dates: start: 201803, end: 201805
  3. PREDNISONE. [Concomitant]
     Active Substance: PREDNISONE
     Indication: PNEUMONITIS
     Dosage: 40.0MG UNKNOWN
     Route: 048
     Dates: start: 20180613
  4. PREDNISONE. [Concomitant]
     Active Substance: PREDNISONE
     Indication: PNEUMONITIS
     Dosage: 70.0MG UNKNOWN
     Route: 048
     Dates: start: 201806
  5. ELIQUIS [Concomitant]
     Active Substance: APIXABAN
     Indication: ATRIAL FIBRILLATION
     Dosage: TWO TIMES A DAY
     Route: 048
     Dates: start: 201711
  6. TAMBOCOR [Concomitant]
     Active Substance: FLECAINIDE ACETATE
     Indication: ATRIAL FIBRILLATION
     Dosage: DAILY
     Route: 048
     Dates: start: 201711

REACTIONS (3)
  - Pneumonitis [Recovering/Resolving]
  - Lethargy [Not Recovered/Not Resolved]
  - Lung disorder [Unknown]

NARRATIVE: CASE EVENT DATE: 201805
